FAERS Safety Report 18933266 (Version 1)
Quarter: 2021Q1

REPORT INFORMATION
  Report Type: Spontaneous
  Country: US (occurrence: US)
  Receive Date: 20210224
  Receipt Date: 20210224
  Transmission Date: 20210420
  Serious: No
  Sender: FDA-Public Use
  Company Number: None

PATIENT
  Age: 26 Year
  Sex: Female
  Weight: 75.15 kg

DRUGS (10)
  1. CILOSTAZOL. [Suspect]
     Active Substance: CILOSTAZOL
     Indication: RAYNAUD^S PHENOMENON
     Dosage: ?          QUANTITY:1 TABLET(S);?
     Route: 048
     Dates: start: 20210127, end: 20210223
  2. MIRENA [Concomitant]
     Active Substance: LEVONORGESTREL
  3. VITAMIN E [Concomitant]
     Active Substance: .ALPHA.-TOCOPHEROL
  4. SUMATRIPTAN. [Concomitant]
     Active Substance: SUMATRIPTAN
  5. VITAMIN D3 [Concomitant]
     Active Substance: CHOLECALCIFEROL
  6. NITROFURANTOIN (MACROCRYSTAL?MONOHYDRATE) [Concomitant]
     Active Substance: NITROFURANTOIN
  7. FERROUS SULFATE 325 MG (65 MG IRON) [Concomitant]
  8. LORATADINE. [Concomitant]
     Active Substance: LORATADINE
  9. MELATONIN [Concomitant]
     Active Substance: MELATONIN
  10. NON?AEROSOL PREDNISONE [Concomitant]

REACTIONS (4)
  - Heart rate increased [None]
  - Dizziness [None]
  - Palpitations [None]
  - Hyperhidrosis [None]

NARRATIVE: CASE EVENT DATE: 20210223
